FAERS Safety Report 11515103 (Version 2)
Quarter: 2015Q3

REPORT INFORMATION
  Report Type: Spontaneous
  Country: TR (occurrence: TR)
  Receive Date: 20150916
  Receipt Date: 20150918
  Transmission Date: 20151125
  Serious: Yes (Death)
  Sender: FDA-Public Use
  Company Number: PHHY2015TR109801

PATIENT

DRUGS (3)
  1. DIGOXIN. [Suspect]
     Active Substance: DIGOXIN
     Indication: FOETAL EXPOSURE DURING PREGNANCY
     Dosage: MATERNAL DOSE: 1200 UG WAS GIVEN AS 0.40 MG/DOSE FOR 24 HOURS AT 8-HOUR
     Route: 064
  2. SOTALOL. [Suspect]
     Active Substance: SOTALOL
     Indication: FOETAL EXPOSURE DURING PREGNANCY
     Dosage: 160 MG/DAY, 2 DOSES (MATERNAL DOSE)
     Route: 064
  3. DIGOXIN. [Suspect]
     Active Substance: DIGOXIN
     Dosage: MATERNAL DOSE: 0.25 MG/DOSE, 2 DOSES
     Route: 064

REACTIONS (3)
  - Hydrops foetalis [Fatal]
  - Foetal exposure during pregnancy [Unknown]
  - General physical health deterioration [Unknown]
